FAERS Safety Report 22991417 (Version 8)
Quarter: 2024Q2

REPORT INFORMATION
  Report Type: Spontaneous
  Country: AU (occurrence: AU)
  Receive Date: 20230927
  Receipt Date: 20240422
  Transmission Date: 20240715
  Serious: Yes (Hospitalization, Other)
  Sender: FDA-Public Use
  Company Number: AU-MYLANLABS-2023M1101875

PATIENT
  Age: 64 Year
  Sex: Male

DRUGS (25)
  1. CLOZARIL [Suspect]
     Active Substance: CLOZAPINE
     Indication: Schizophrenia
     Dosage: 475 MILLIGRAM
     Route: 048
     Dates: start: 20060504, end: 20231013
  2. CLOZARIL [Suspect]
     Active Substance: CLOZAPINE
     Indication: Schizoaffective disorder
     Dosage: 400 MILLIGRAM, (100 MG IN THE MORNING AND 300 MG AT NIGHT)
     Route: 065
     Dates: start: 2015
  3. CLOZARIL [Suspect]
     Active Substance: CLOZAPINE
     Dosage: 450 MILLIGRAM
     Route: 065
  4. CLOZARIL [Suspect]
     Active Substance: CLOZAPINE
     Dosage: 400 MILLIGRAM
     Route: 065
     Dates: start: 2013
  5. CLOZARIL [Suspect]
     Active Substance: CLOZAPINE
     Dosage: 400 MILLIGRAM NOCTE
     Route: 065
     Dates: start: 2014
  6. CLOZARIL [Suspect]
     Active Substance: CLOZAPINE
     Dosage: 600 MILLIGRAM(200MG MANE, 400MG NOCTE)
     Route: 065
     Dates: start: 2016
  7. CLOZARIL [Suspect]
     Active Substance: CLOZAPINE
     Dosage: 500 MILLIGRAM(200MG MANE, 100MG MIDDAY, 200MG NOCTE)
     Route: 065
     Dates: start: 2018
  8. CLOZARIL [Suspect]
     Active Substance: CLOZAPINE
     Dosage: 25 MILLIGRAM(2 TABLET IN MORNING, 1 TABLET IN NIGHT)
     Route: 065
  9. CLOZARIL [Suspect]
     Active Substance: CLOZAPINE
     Dosage: 100 MILLIGRAM(4 TABLETS AT NIGHT)
     Route: 065
     Dates: end: 202304
  10. CLOZARIL [Suspect]
     Active Substance: CLOZAPINE
     Dosage: UNK
     Route: 065
     Dates: start: 202305
  11. CLOZARIL [Suspect]
     Active Substance: CLOZAPINE
     Dosage: UNK, QD (400MG-450MG NOCTE)
     Route: 065
     Dates: start: 200912, end: 202310
  12. VALPROATE [Suspect]
     Active Substance: VALPROIC ACID
     Indication: Mood swings
     Dosage: 500 MILLIGRAM, BID
     Route: 065
     Dates: end: 20231126
  13. VALPROATE [Suspect]
     Active Substance: VALPROIC ACID
     Dosage: 700 MILLIGRAM(200MG MANE,500MG NOCTE)
     Route: 065
     Dates: start: 2014, end: 202311
  14. VALPROATE [Suspect]
     Active Substance: VALPROIC ACID
     Dosage: UNK (500/1G)
     Route: 065
     Dates: start: 200912, end: 202312
  15. OLANZAPINE [Concomitant]
     Active Substance: OLANZAPINE
     Indication: Psychotic disorder
     Dosage: UNK
     Route: 065
  16. OLANZAPINE [Concomitant]
     Active Substance: OLANZAPINE
     Indication: Schizoaffective disorder
     Dosage: 30 MILLIGRAM, HS (INCREASED)
     Route: 065
  17. OLANZAPINE [Concomitant]
     Active Substance: OLANZAPINE
     Dosage: 5 MILLIGRAM NOCTE
     Route: 065
     Dates: start: 2014
  18. OLANZAPINE [Concomitant]
     Active Substance: OLANZAPINE
     Dosage: 15 MILLIGRAM, BID (15MG TWICE A DAY)
     Route: 065
     Dates: start: 20240119
  19. OLANZAPINE [Concomitant]
     Active Substance: OLANZAPINE
     Dosage: 210 MILLIGRAM
     Route: 065
     Dates: start: 201208
  20. OLANZAPINE [Concomitant]
     Active Substance: OLANZAPINE
     Dosage: 405 MILLIGRAM, 4XW (405MG, Q4W)
     Route: 065
     Dates: start: 201203, end: 201208
  21. DOCUSATE SODIUM\SENNOSIDE A\SENNOSIDE B [Concomitant]
     Active Substance: DOCUSATE SODIUM\SENNOSIDE A\SENNOSIDE B
     Indication: Constipation
     Dosage: TAKE 2 TABLETS TWICE A DAY
     Route: 065
  22. CHLORPROMAZINE [Concomitant]
     Active Substance: CHLORPROMAZINE
     Indication: Psychotic disorder
     Dosage: 100 MILLIGRAM, QD (100MG NOCTE)
     Route: 065
     Dates: start: 20240321
  23. FERROUS SULFATE [Concomitant]
     Active Substance: FERROUS SULFATE
     Indication: Iron deficiency
     Dosage: 325 MILLIGRAM, QD (325MG MANE)
     Route: 065
     Dates: start: 20240131
  24. MELATONIN [Concomitant]
     Active Substance: MELATONIN
     Indication: Insomnia
     Dosage: 6 MILLIGRAM, QD (6 MG NOCTE)
     Route: 065
     Dates: start: 20240123
  25. GLECAPREVIR\PIBRENTASVIR [Concomitant]
     Active Substance: GLECAPREVIR\PIBRENTASVIR
     Indication: Hepatitis C
     Dosage: 3 DOSAGE FORM, QD (3 TABLETS MANE)
     Route: 065
     Dates: start: 20240413

REACTIONS (12)
  - Neutropenia [Unknown]
  - Mental disorder [Not Recovered/Not Resolved]
  - Psychotic disorder [Unknown]
  - Schizophrenia [Unknown]
  - Cytopenia [Not Recovered/Not Resolved]
  - Thrombocytopenia [Unknown]
  - Neutrophil count decreased [Recovered/Resolved]
  - White blood cell count decreased [Recovered/Resolved]
  - Anaemia [Unknown]
  - Treatment noncompliance [Unknown]
  - Haemoglobin decreased [Unknown]
  - Off label use [Unknown]

NARRATIVE: CASE EVENT DATE: 20231013
